FAERS Safety Report 24981772 (Version 2)
Quarter: 2025Q1

REPORT INFORMATION
  Report Type: Spontaneous
  Country: JP (occurrence: JP)
  Receive Date: 20250218
  Receipt Date: 20250220
  Transmission Date: 20250408
  Serious: No
  Sender: MERCK SHARP & DOHME LLC
  Company Number: JP-009507513-2255667

PATIENT
  Age: 73 Year
  Sex: Male

DRUGS (1)
  1. PEMBROLIZUMAB [Suspect]
     Active Substance: PEMBROLIZUMAB
     Indication: Bladder cancer

REACTIONS (3)
  - Pruritus [Recovering/Resolving]
  - Face oedema [Recovering/Resolving]
  - Rash [Recovering/Resolving]
